FAERS Safety Report 21723938 (Version 1)
Quarter: 2022Q4

REPORT INFORMATION
  Report Type: Spontaneous
  Country: US (occurrence: None)
  Receive Date: 20221212
  Receipt Date: 20221212
  Transmission Date: 20230113
  Serious: Yes (Hospitalization)
  Sender: FDA-Public Use
  Company Number: None

PATIENT
  Sex: Female

DRUGS (26)
  1. GAMMAGARD S/D [Suspect]
     Active Substance: HUMAN IMMUNOGLOBULIN G
     Indication: Stiff person syndrome
     Dosage: MIX TO A 5% SOLUTION PER PACKAGE INSERT AND INFUSE 20 GRAMS INTRAVENOUSLY DAILY FOR 5 DAYS EVERY ?MO
     Route: 042
     Dates: start: 20221027
  2. GAMMAGARD S/D [Suspect]
     Active Substance: HUMAN IMMUNOGLOBULIN G
     Dosage: FREQUENCY : MONTHLY;?
     Route: 042
  3. ACETAMINOPHEN [Concomitant]
     Active Substance: ACETAMINOPHEN
  4. CLONAZEP ODT [Concomitant]
  5. DIAZEPAM [Concomitant]
     Active Substance: DIAZEPAM
  6. DIAZEPAM [Concomitant]
     Active Substance: DIAZEPAM
  7. DIAZEPAM [Concomitant]
     Active Substance: DIAZEPAM
  8. DIPHENHYDRAMINE [Concomitant]
     Active Substance: DIPHENHYDRAMINE
  9. DULOXETINE [Concomitant]
     Active Substance: DULOXETINE
  10. DULOXETINE [Concomitant]
     Active Substance: DULOXETINE
  11. HEP LOCK [Concomitant]
  12. LIDOCAINE/PRILOCAINE CRE 2.5% [Concomitant]
  13. OCTAGAM IMMUNE GLOBULIN (HUMAN) [Concomitant]
     Active Substance: HUMAN IMMUNOGLOBULIN G
  14. OCTAGAM IMMUNE GLOBULIN (HUMAN) [Concomitant]
     Active Substance: HUMAN IMMUNOGLOBULIN G
  15. OCTAGAM IMMUNE GLOBULIN (HUMAN) [Concomitant]
     Active Substance: HUMAN IMMUNOGLOBULIN G
  16. ONDANSETRON [Concomitant]
     Active Substance: ONDANSETRON
  17. OXYCODONE SOL [Concomitant]
  18. PREGABALIN [Concomitant]
     Active Substance: PREGABALIN
  19. PREGABALIN [Concomitant]
     Active Substance: PREGABALIN
  20. SOD CHL 0.9% [Concomitant]
  21. SOD CHL 0.9% [Concomitant]
  22. SOD CHL 0.9 STRL FLSH [Concomitant]
  23. SOLU-MEDROLAOV SDV [Concomitant]
  24. TAMSULOSIN [Concomitant]
     Active Substance: TAMSULOSIN
  25. TENOFOVIR [Concomitant]
     Active Substance: TENOFOVIR
  26. TIZANIDINE [Concomitant]
     Active Substance: TIZANIDINE

REACTIONS (7)
  - Abdominal pain [None]
  - Migraine [None]
  - Pelvic pain [None]
  - Respiratory disorder [None]
  - Rash [None]
  - Condition aggravated [None]
  - Substance use [None]
